FAERS Safety Report 8502106-4 (Version None)
Quarter: 2012Q2

REPORT INFORMATION
  Report Type: 
  Country: None (occurrence: None)
  Receive Date: 20120405
  Receipt Date: 20101018
  Transmission Date: 20120825
  Serious: Yes (Other)
  Sender: FDA-Public Use
  Company Number: PHHY2010US66304

PATIENT
  Age: 77 Year
  Sex: Female
  Weight: 143 kg

DRUGS (5)
  1. RECLAST [Suspect]
     Indication: OSTEOPOROSIS POSTMENOPAUSAL
     Dosage: 5 MG ONCE YEAR, INTRAVENOUS
     Route: 042
     Dates: start: 20081001, end: 20101001
  2. MIACALCIN [Concomitant]
  3. FOSAMAX [Concomitant]
  4. BONIVA [Concomitant]
  5. ACTONEL [Concomitant]

REACTIONS (1)
  - BONE DENSITY DECREASED [None]
